FAERS Safety Report 7933447-7 (Version None)
Quarter: 2011Q4

REPORT INFORMATION
  Report Type: 
  Country: None (occurrence: None)
  Receive Date: 20111122
  Receipt Date: 20110824
  Transmission Date: 20120403
  Serious: No
  Sender: FDA-Public Use
  Company Number: US-BAYER-2011-080677

PATIENT
  Sex: Male
  Weight: 56.689 kg

DRUGS (5)
  1. LASIX [Concomitant]
  2. TOPROL-XL [Concomitant]
  3. ALEVE (CAPLET) [Suspect]
     Indication: ANALGESIC THERAPY
     Dosage: 1 DF, TID
     Dates: start: 20110818, end: 20110821
  4. DYAZIDE [Concomitant]
  5. VITAMIN B1 TAB [Concomitant]

REACTIONS (1)
  - PAIN [None]
